FAERS Safety Report 5854975-4 (Version None)
Quarter: 2008Q3

REPORT INFORMATION
  Report Type: 
  Country: None (occurrence: None)
  Receive Date: 20080822
  Receipt Date: 20080415
  Transmission Date: 20090109
  Serious: No
  Sender: FDA-Public Use
  Company Number: US-ABBOTT-08P-163-0447635-00

PATIENT
  Sex: Female
  Weight: 148.46 kg

DRUGS (5)
  1. SYNTHROID [Suspect]
     Indication: AUTOIMMUNE THYROIDITIS
     Route: 048
     Dates: start: 20070801, end: 20080226
  2. SYNTHROID [Suspect]
     Route: 048
     Dates: start: 20080226
  3. LEVOTHYROXINE SODIUM [Suspect]
     Indication: AUTOIMMUNE THYROIDITIS
     Route: 048
     Dates: start: 20050101
  4. LEVOTHYROXINE SODIUM [Suspect]
     Route: 048
  5. LEVOTHYROXINE SODIUM [Suspect]
     Route: 048
     Dates: end: 20070801

REACTIONS (10)
  - DIZZINESS [None]
  - FEELING HOT [None]
  - HEADACHE [None]
  - MALAISE [None]
  - NAUSEA [None]
  - PRESYNCOPE [None]
  - PRURITUS [None]
  - RASH [None]
  - SKIN EXFOLIATION [None]
  - WOUND [None]
